FAERS Safety Report 15856914 (Version 1)
Quarter: 2019Q1

REPORT INFORMATION
  Report Type: Spontaneous
  Country: DE (occurrence: DE)
  Receive Date: 20190123
  Receipt Date: 20190123
  Transmission Date: 20190417
  Serious: Yes (Other)
  Sender: FDA-Public Use
  Company Number: DE-TEVA-2019-DE-998930

PATIENT
  Sex: Female
  Weight: 65 kg

DRUGS (1)
  1. AZI-TEVA 500 MG FILMTABLETTEN [Suspect]
     Active Substance: AZITHROMYCIN MONOHYDRATE

REACTIONS (4)
  - Paraesthesia [Unknown]
  - Sensory disturbance [Unknown]
  - Deafness unilateral [Unknown]
  - Hot flush [Unknown]
